FAERS Safety Report 8299699-1 (Version None)
Quarter: 2012Q2

REPORT INFORMATION
  Report Type: 
  Country: None (occurrence: None)
  Receive Date: 20120419
  Receipt Date: 20120413
  Transmission Date: 20120825
  Serious: Yes (Death)
  Sender: FDA-Public Use
  Company Number: US-AMGEN-USASP2011037850

PATIENT

DRUGS (2)
  1. ENBREL [Suspect]
     Dosage: 50 MG, Q2WK
     Route: 064
     Dates: start: 20110127, end: 20110311
  2. ENBREL [Suspect]
     Dosage: 50 MG, Q2WK
     Route: 064
     Dates: start: 20110109, end: 20110213

REACTIONS (1)
  - FOETAL CHROMOSOME ABNORMALITY [None]
